FAERS Safety Report 7103350-3 (Version None)
Quarter: 2010Q4

REPORT INFORMATION
  Report Type: 
  Country: None (occurrence: None)
  Receive Date: 20101115
  Receipt Date: 20101110
  Transmission Date: 20110411
  Serious: Yes (Other)
  Sender: FDA-Public Use
  Company Number: CO-PFIZER INC-2010111129

PATIENT
  Age: 59 Year
  Sex: Female

DRUGS (7)
  1. LYRICA [Suspect]
     Indication: FIBROMYALGIA
     Dosage: 75 MG, 1X/DAY
     Route: 048
     Dates: start: 20051209
  2. LYRICA [Suspect]
     Indication: ANXIETY
     Dosage: 75 MG, 2X/DAY
  3. LYRICA [Suspect]
     Dosage: 37.5MG AT 8AM, 150MG BEDTIME
  4. FLUOXETINE [Concomitant]
     Indication: DEPRESSION
     Dosage: 20 MG, 1X/DAY
     Route: 048
     Dates: start: 20040101
  5. LEXAPRO [Concomitant]
     Indication: DEPRESSION
     Dosage: 10 MG, 1X/DAY
     Route: 048
  6. DOLEX [Concomitant]
     Indication: PAIN
     Dosage: UNK
     Route: 048
  7. ACETAMINOPHEN [Concomitant]
     Indication: PAIN
     Dosage: 500 MG, AS NEEDED
     Route: 048

REACTIONS (7)
  - BENIGN NEOPLASM OF THYROID GLAND [None]
  - DEPRESSION [None]
  - LYMPH NODE CANCER METASTATIC [None]
  - PAIN [None]
  - SOMNOLENCE [None]
  - STRESS [None]
  - THROAT CANCER [None]
